FAERS Safety Report 9310393 (Version 1)
Quarter: 2013Q2

REPORT INFORMATION
  Report Type: Spontaneous
  Country: US (occurrence: US)
  Receive Date: 20130527
  Receipt Date: 20130527
  Transmission Date: 20140414
  Serious: Yes (Other)
  Sender: FDA-Public Use
  Company Number: US-PFIZER INC-2013161100

PATIENT
  Age: 44 Year
  Sex: Female
  Weight: 70.3 kg

DRUGS (2)
  1. VENLAFAXINE HCL [Suspect]
     Indication: DEPRESSION
     Dosage: 150 MG, DAILY
  2. VENLAFAXINE HCL [Suspect]
     Indication: ANXIETY

REACTIONS (2)
  - Amnesia [Unknown]
  - Dizziness [Unknown]
